FAERS Safety Report 10401674 (Version 2)
Quarter: 2015Q4

REPORT INFORMATION
  Report Type: Spontaneous
  Country: JP (occurrence: JP)
  Receive Date: 20140822
  Receipt Date: 20151201
  Transmission Date: 20160304
  Serious: Yes (Other)
  Sender: FDA-Public Use
  Company Number: JP-JNJFOC-20140815994

PATIENT

DRUGS (2)
  1. DUROTEP MT [Suspect]
     Active Substance: FENTANYL
     Indication: CANCER PAIN
     Route: 062
  2. OXINORM [Concomitant]
     Active Substance: OXYCODONE HYDROCHLORIDE
     Indication: CANCER PAIN
     Route: 048

REACTIONS (3)
  - Melaena [Unknown]
  - Inadequate analgesia [Unknown]
  - Aspiration [Unknown]
